FAERS Safety Report 5033270-X (Version None)
Quarter: 2006Q2

REPORT INFORMATION
  Report Type: 
  Country: None (occurrence: None)
  Receive Date: 20060623
  Receipt Date: 20060614
  Transmission Date: 20061013
  Serious: Yes (Death, Life-Threatening, Hospitalization, Other)
  Sender: FDA-Public Use
  Company Number: GB-JNJFOC-20060603549

PATIENT
  Sex: Female
  Weight: 48 kg

DRUGS (7)
  1. REMICADE [Suspect]
     Indication: RHEUMATOID ARTHRITIS
     Route: 042
  2. METHOTREXATE [Concomitant]
  3. ASPIRIN [Concomitant]
     Route: 065
  4. CALCICHEW [Concomitant]
     Route: 065
  5. FOLIC ACID [Concomitant]
     Route: 065
  6. FOSAMAX [Concomitant]
     Route: 065
  7. PARACETAMOL [Concomitant]
     Route: 065

REACTIONS (3)
  - LYMPHOMA [None]
  - MYOCARDIAL INFARCTION [None]
  - SEPTIC SHOCK [None]
